FAERS Safety Report 19201401 (Version 1)
Quarter: 2021Q2

REPORT INFORMATION
  Report Type: Spontaneous
  Country: CN (occurrence: CN)
  Receive Date: 20210430
  Receipt Date: 20210430
  Transmission Date: 20210717
  Serious: Yes (Other)
  Sender: FDA-Public Use
  Company Number: CN-PFIZER INC-2021435416

PATIENT
  Age: 58 Year
  Sex: Male

DRUGS (6)
  1. MOXIFLOXACIN. [Concomitant]
     Active Substance: MOXIFLOXACIN
     Indication: MYCOBACTERIUM ABSCESSUS INFECTION
     Dosage: 400 MG, 1X/DAY
     Route: 048
     Dates: start: 2018
  2. LINEZOLID. [Suspect]
     Active Substance: LINEZOLID
     Indication: MYCOBACTERIUM ABSCESSUS INFECTION
     Dosage: 600 MG, 2X/DAY
     Dates: start: 20180703, end: 201807
  3. CLOFAZIMINE [Concomitant]
     Active Substance: CLOFAZIMINE
     Indication: MYCOBACTERIUM ABSCESSUS INFECTION
     Dosage: 100 MG, 1X/DAY
     Route: 048
     Dates: start: 2018
  4. AMIKACIN. [Concomitant]
     Active Substance: AMIKACIN
     Indication: MYCOBACTERIUM ABSCESSUS INFECTION
     Dosage: 400 MG, 1X/DAY
     Route: 048
     Dates: start: 2018
  5. LINEZOLID. [Suspect]
     Active Substance: LINEZOLID
     Dosage: 600 MG, 1X/DAY
     Dates: start: 20180727
  6. CLARITHROMYCIN. [Concomitant]
     Active Substance: CLARITHROMYCIN
     Indication: MYCOBACTERIUM ABSCESSUS INFECTION
     Dosage: 1000 MG, 1X/DAY
     Route: 048
     Dates: start: 2018

REACTIONS (4)
  - Myelosuppression [Recovering/Resolving]
  - Drug effective for unapproved indication [Unknown]
  - Myelodysplastic syndrome [Recovering/Resolving]
  - Off label use [Unknown]

NARRATIVE: CASE EVENT DATE: 20180703
